FAERS Safety Report 18944646 (Version 1)
Quarter: 2021Q1

REPORT INFORMATION
  Report Type: Spontaneous
  Country: US (occurrence: US)
  Receive Date: 20210226
  Receipt Date: 20210226
  Transmission Date: 20210420
  Serious: Yes (Hospitalization)
  Sender: FDA-Public Use
  Company Number: None

PATIENT
  Age: 62 Year
  Sex: Male
  Weight: 96 kg

DRUGS (4)
  1. RITUXIMAB (MOAB C2B8 ANTI CD20, CHIMERIC) [Suspect]
     Active Substance: RITUXIMAB
     Dates: end: 20210211
  2. ACALABRUTINIB. [Suspect]
     Active Substance: ACALABRUTINIB
     Dates: end: 20210217
  3. BENDAMUSTINE HYDROCHLORIDE. [Suspect]
     Active Substance: BENDAMUSTINE HYDROCHLORIDE
     Dates: end: 20201120
  4. CYTARABINE. [Suspect]
     Active Substance: CYTARABINE
     Dates: end: 20210212

REACTIONS (7)
  - Back pain [None]
  - Pyrexia [None]
  - Fatigue [None]
  - Pneumonia [None]
  - Chest pain [None]
  - Cough [None]
  - Fungal infection [None]

NARRATIVE: CASE EVENT DATE: 20210224
